FAERS Safety Report 15785512 (Version 1)
Quarter: 2019Q1

REPORT INFORMATION
  Report Type: Spontaneous
  Country: US (occurrence: US)
  Receive Date: 20190102
  Receipt Date: 20190102
  Transmission Date: 20190417
  Serious: Yes (Life-Threatening, Disabling, Other)
  Sender: FDA-Public Use
  Company Number: None

PATIENT
  Age: 35 Year
  Sex: Female
  Weight: 50.85 kg

DRUGS (1)
  1. CYMBALTA [Suspect]
     Active Substance: DULOXETINE HYDROCHLORIDE
     Dosage: ?          QUANTITY:30 CAPSULE(S);?
     Route: 048
     Dates: start: 20180301, end: 20181225

REACTIONS (11)
  - Dizziness [None]
  - Amnesia [None]
  - Affective disorder [None]
  - Lethargy [None]
  - Suicidal ideation [None]
  - Disorientation [None]
  - Nervous system disorder [None]
  - Hypertension [None]
  - Weight increased [None]
  - Self-injurious ideation [None]
  - Paraesthesia oral [None]
